FAERS Safety Report 7115304-1 (Version None)
Quarter: 2010Q4

REPORT INFORMATION
  Report Type: 
  Country: None (occurrence: None)
  Receive Date: 20101116
  Receipt Date: 20101116
  Transmission Date: 20110411
  Serious: Yes (Hospitalization)
  Sender: FDA-Public Use
  Company Number: None

PATIENT
  Age: 83 Year
  Sex: Female

DRUGS (8)
  1. REVLIMID [Suspect]
     Indication: MYELODYSPLASTIC SYNDROME
     Dosage: REVLIMID 5MG DAILY X21D/28D DAILY ORALLY
     Route: 048
     Dates: start: 20100809, end: 20100907
  2. PROCRIT [Concomitant]
  3. LISINOPRIL [Concomitant]
  4. ALLOPURINOL [Concomitant]
  5. LOVASTATIN [Concomitant]
  6. ADVAIR DISKUS 100/50 [Concomitant]
  7. SPIRIVA [Concomitant]
  8. EVISTA [Concomitant]

REACTIONS (4)
  - CARDIAC FAILURE CONGESTIVE [None]
  - PNEUMONIA [None]
  - PULMONARY OEDEMA [None]
  - RECTAL HAEMORRHAGE [None]
